FAERS Safety Report 8146252-6 (Version None)
Quarter: 2012Q1

REPORT INFORMATION
  Report Type: 
  Country: None (occurrence: None)
  Receive Date: 20120217
  Receipt Date: 20111209
  Transmission Date: 20120608
  Serious: No
  Sender: FDA-Public Use
  Company Number: US-ABBOTT-11P-163-0882252-00

PATIENT
  Sex: Male
  Weight: 70.37 kg

DRUGS (2)
  1. SIMCOR [Suspect]
     Indication: HIGH DENSITY LIPOPROTEIN DECREASED
     Dosage: AT BEDTIME
  2. 2 HIGH BLOOD PRESSURE MEDICATIONS [Concomitant]
     Indication: HYPERTENSION

REACTIONS (1)
  - FEELING HOT [None]
